FAERS Safety Report 9367540 (Version 1)
Quarter: 2013Q2

REPORT INFORMATION
  Report Type: Spontaneous
  Country: US (occurrence: US)
  Receive Date: 20130625
  Receipt Date: 20130625
  Transmission Date: 20140414
  Serious: No
  Sender: FDA-Public Use
  Company Number: US-ASTELLAS-2012US007391

PATIENT
  Age: 75 Year
  Sex: Male

DRUGS (5)
  1. VESICARE [Suspect]
     Indication: MICTURITION URGENCY
     Dosage: 5 MG, UID/QD
     Route: 048
     Dates: start: 201107
  2. VESICARE [Suspect]
     Dosage: 5 MG, EVERY 3 DAYS
     Route: 048
     Dates: start: 2012, end: 2012
  3. VESICARE [Suspect]
     Dosage: 5 MG, 3XWEEKLY
     Route: 048
     Dates: start: 2012
  4. CRESTOR [Concomitant]
     Indication: PRODUCT USED FOR UNKNOWN INDICATION
     Dosage: 10 MG, UID/QD
     Route: 065
  5. ASPIRIN [Concomitant]
     Indication: PRODUCT USED FOR UNKNOWN INDICATION
     Dosage: 250 MG, UID/QD
     Route: 048

REACTIONS (4)
  - Drug ineffective [Recovered/Resolved]
  - Inappropriate schedule of drug administration [Unknown]
  - Nocturia [Recovered/Resolved]
  - Pollakiuria [Recovered/Resolved]
